FAERS Safety Report 22088830 (Version 1)
Quarter: 2023Q1

REPORT INFORMATION
  Report Type: Report from Study
  Country: AR (occurrence: AR)
  Receive Date: 20230313
  Receipt Date: 20230313
  Transmission Date: 20230418
  Serious: Yes (Hospitalization)
  Sender: FDA-Public Use
  Company Number: AR-BIOGEN-2023BI01192699

PATIENT
  Age: 2 Year
  Sex: Female

DRUGS (1)
  1. SPINRAZA [Suspect]
     Active Substance: NUSINERSEN
     Indication: Spinal muscular atrophy
     Route: 050
     Dates: start: 20230214

REACTIONS (3)
  - Post procedural complication [Recovered/Resolved]
  - Post procedural fever [Recovered/Resolved]
  - Procedural vomiting [Recovered/Resolved]

NARRATIVE: CASE EVENT DATE: 20230215
